FAERS Safety Report 9835388 (Version 1)
Quarter: 2014Q1

REPORT INFORMATION
  Report Type: Spontaneous
  Country: US (occurrence: US)
  Receive Date: 20140122
  Receipt Date: 20140122
  Transmission Date: 20141002
  Serious: No
  Sender: FDA-Public Use
  Company Number: US-BRISTOL-MYERS SQUIBB COMPANY-19542737

PATIENT
  Age: 71 Year
  Sex: Male

DRUGS (6)
  1. ELIQUIS [Suspect]
     Dosage: PRODUCT FORMULATION:ELIQUIS 5 MG
     Dates: start: 2013
  2. CARVEDILOL [Concomitant]
  3. LOSARTAN [Concomitant]
  4. LIPITOR [Concomitant]
  5. LEVOTHYROXINE [Concomitant]
  6. METFORMIN [Concomitant]

REACTIONS (1)
  - Headache [Unknown]
